FAERS Safety Report 5729755-0 (Version None)
Quarter: 2008Q2

REPORT INFORMATION
  Report Type: 
  Country: None (occurrence: None)
  Receive Date: 20080501
  Receipt Date: 20080421
  Transmission Date: 20081010
  Serious: Yes (Life-Threatening)
  Sender: FDA-Public Use
  Company Number: 2006EU003385

PATIENT
  Age: 68 Year
  Sex: Female

DRUGS (3)
  1. PROGRAF [Suspect]
     Indication: CORNEAL TRANSPLANT
     Dosage: 1 MG, BID, ORAL
     Route: 048
     Dates: start: 20030325, end: 20061219
  2. MAXIDEX [Concomitant]
  3. CHLOROMYCETIN [Concomitant]

REACTIONS (2)
  - BRONCHIAL CARCINOMA [None]
  - CORNEAL TRANSPLANT [None]
